FAERS Safety Report 4650321-2 (Version None)
Quarter: 2005Q2

REPORT INFORMATION
  Report Type: 
  Country: None (occurrence: None)
  Receive Date: 20050428
  Receipt Date: 20050314
  Transmission Date: 20051028
  Serious: Yes (Congenital Anomaly)
  Sender: FDA-Public Use
  Company Number: 2005020655

PATIENT
  Sex: 0

DRUGS (5)
  1. XANAX [Suspect]
     Indication: TREMOR
     Dosage: 1.5 MG (0.5 MG, 3 IN 1 D), ORAL
     Route: 048
     Dates: start: 19970101
  2. ALL OTHER THERAPEUTIC PRODUCTS (ALL OTHER THERAPEUTIC PRODUTS) [Suspect]
     Indication: ILL-DEFINED DISORDER
  3. DURAGESIC (FENTANYL) [Concomitant]
  4. AMBIEN [Concomitant]
  5. PHENOBARBITAL TAB [Concomitant]

REACTIONS (3)
  - DRUG EXPOSURE DURING PREGNANCY [None]
  - PREMATURE BABY [None]
  - SMALL FOR DATES BABY [None]
